FAERS Safety Report 4704437-2 (Version None)
Quarter: 2005Q2

REPORT INFORMATION
  Report Type: 
  Country: None (occurrence: None)
  Receive Date: 20050628
  Receipt Date: 20050613
  Transmission Date: 20051028
  Serious: Yes (Other)
  Sender: FDA-Public Use
  Company Number: EWC050443472

PATIENT
  Age: 51 Year
  Sex: Male

DRUGS (2)
  1. FORSTEO (TERIPARATIDE) [Suspect]
     Dosage: 20 UG DAY
     Dates: start: 20040525
  2. UNIKALK M. D-VITAMIN [Concomitant]

REACTIONS (5)
  - CONDITION AGGRAVATED [None]
  - DEPRESSION [None]
  - FATIGUE [None]
  - MULTIPLE MYELOMA [None]
  - MYELODYSPLASTIC SYNDROME [None]
